FAERS Safety Report 8443049-4 (Version None)
Quarter: 2012Q2

REPORT INFORMATION
  Report Type: 
  Country: None (occurrence: None)
  Receive Date: 20120615
  Receipt Date: 20120608
  Transmission Date: 20120825
  Serious: Yes (Other)
  Sender: FDA-Public Use
  Company Number: US-ABBOTT-12P-163-0943987-00

PATIENT
  Sex: Female
  Weight: 74.456 kg

DRUGS (3)
  1. HUMIRA [Suspect]
     Indication: RHEUMATOID ARTHRITIS
     Route: 058
     Dates: start: 20050101, end: 20111201
  2. MORPHINE [Suspect]
     Indication: PROCEDURAL PAIN
     Route: 030
     Dates: start: 20120301, end: 20120301
  3. PREDNISONE [Concomitant]
     Indication: RHEUMATOID ARTHRITIS
     Route: 048

REACTIONS (5)
  - THINKING ABNORMAL [None]
  - GAIT DISTURBANCE [None]
  - DECREASED APPETITE [None]
  - PARANOIA [None]
  - ARTHRALGIA [None]
